FAERS Safety Report 21991797 (Version 6)
Quarter: 2023Q2

REPORT INFORMATION
  Report Type: Report from Study
  Country: IE (occurrence: IE)
  Receive Date: 20230214
  Receipt Date: 20230528
  Transmission Date: 20230722
  Serious: Yes (Hospitalization, Other)
  Sender: FDA-Public Use
  Company Number: IE-ALXN-A202205462

PATIENT
  Age: 4 Year
  Sex: Male

DRUGS (13)
  1. KANUMA [Suspect]
     Active Substance: SEBELIPASE ALFA
     Indication: Lysosomal acid lipase deficiency
     Dosage: 80 MG, QW
     Route: 042
     Dates: start: 20190701
  2. ACYCLOVIR [Concomitant]
     Active Substance: ACYCLOVIR
     Indication: Product used for unknown indication
     Dosage: 3 ML, QID
     Route: 050
  3. AMOXICILLIN [Concomitant]
     Active Substance: AMOXICILLIN
     Indication: Product used for unknown indication
     Dosage: 5 ML, TID
     Route: 050
  4. ATROVENT [Concomitant]
     Active Substance: IPRATROPIUM BROMIDE
     Indication: Product used for unknown indication
     Dosage: 250 ?G, TID
     Route: 050
  5. KLACID                             /00984601/ [Concomitant]
     Indication: Product used for unknown indication
     Dosage: 150 MG, BID
     Route: 050
  6. ACETAMINOPHEN [Concomitant]
     Active Substance: ACETAMINOPHEN
     Indication: Product used for unknown indication
     Dosage: 7 ML, PRN
     Route: 050
  7. PENICILLIN                         /00000901/ [Concomitant]
     Indication: Product used for unknown indication
     Dosage: 2.5 ML, BID
     Route: 050
  8. AMOXICILLIN [Concomitant]
     Active Substance: AMOXICILLIN
     Indication: Product used for unknown indication
     Dosage: 4 ML, TID
     Route: 050
  9. CHLORPHENIRAMINE MALEATE [Concomitant]
     Active Substance: CHLORPHENIRAMINE MALEATE
     Indication: Product used for unknown indication
     Dosage: 2.5 MG, PRN
     Route: 050
  10. PULMICORT TURBUHALER [Concomitant]
     Active Substance: BUDESONIDE
     Indication: Product used for unknown indication
     Dosage: 0.52 MG/ML, TID
     Route: 050
  11. ALBUTEROL [Concomitant]
     Active Substance: ALBUTEROL
     Indication: Product used for unknown indication
     Dosage: 2.5 MG/ML, TID
     Route: 050
  12. SPORANOX [Concomitant]
     Active Substance: ITRACONAZOLE
     Indication: Product used for unknown indication
     Dosage: 3.8 ML, QD
     Route: 050
  13. SYNAGIS [Concomitant]
     Active Substance: PALIVIZUMAB
     Indication: Product used for unknown indication
     Dosage: UNK
     Route: 050
     Dates: start: 20181018

REACTIONS (20)
  - Vascular device occlusion [Not Recovered/Not Resolved]
  - Cryptosporidiosis infection [Recovered/Resolved]
  - Human metapneumovirus test positive [Recovering/Resolving]
  - Respiratory symptom [Recovering/Resolving]
  - Malaise [Recovering/Resolving]
  - Body temperature increased [Recovered/Resolved]
  - Sneezing [Recovering/Resolving]
  - Nasopharyngitis [Not Recovered/Not Resolved]
  - Upper-airway cough syndrome [Not Recovered/Not Resolved]
  - Macule [Recovered/Resolved]
  - Lower respiratory tract infection [Recovering/Resolving]
  - Poor venous access [Not Recovered/Not Resolved]
  - Wheezing [Not Recovered/Not Resolved]
  - Viral infection [Recovering/Resolving]
  - Conjunctivitis [Not Recovered/Not Resolved]
  - Rhinorrhoea [Not Recovered/Not Resolved]
  - Nasal congestion [Recovering/Resolving]
  - Breath sounds abnormal [Not Recovered/Not Resolved]
  - Sinus congestion [Not Recovered/Not Resolved]
  - Cough [Recovering/Resolving]

NARRATIVE: CASE EVENT DATE: 20220508
